FAERS Safety Report 8443606 (Version 10)
Quarter: 2013Q4

REPORT INFORMATION
  Report Type: Spontaneous
  Country: US (occurrence: US)
  Receive Date: 20120306
  Receipt Date: 20131226
  Transmission Date: 20140711
  Serious: Yes (Hospitalization, Other)
  Sender: FDA-Public Use
  Company Number: US-ROCHE-1020260

PATIENT
  Age: 33 Year
  Sex: Male
  Weight: 74.91 kg

DRUGS (2)
  1. ACCUTANE [Suspect]
     Indication: ACNE
     Route: 065
     Dates: start: 19971205, end: 19980409
  2. ACCUTANE [Suspect]
     Indication: FURUNCLE

REACTIONS (15)
  - Colitis ulcerative [Unknown]
  - Intestinal obstruction [Unknown]
  - Pouchitis [Unknown]
  - Arthralgia [Unknown]
  - Depression [Unknown]
  - Inflammatory bowel disease [Unknown]
  - Cholangitis sclerosing [Unknown]
  - Headache [Unknown]
  - Hepatic function abnormal [Unknown]
  - Lip dry [Unknown]
  - Sinus congestion [Unknown]
  - Pyrexia [Unknown]
  - Night sweats [Unknown]
  - Cough [Unknown]
  - Acute sinusitis [Unknown]
